FAERS Safety Report 5217060-0 (Version None)
Quarter: 2007Q1

REPORT INFORMATION
  Report Type: 
  Country: None (occurrence: None)
  Receive Date: 20070124
  Receipt Date: 20070117
  Transmission Date: 20070707
  Serious: Yes (Other)
  Sender: FDA-Public Use
  Company Number: RO-ROCHE-478917

PATIENT
  Age: 78 Year
  Sex: Female

DRUGS (4)
  1. BONVIVA [Suspect]
     Route: 048
     Dates: start: 20061115, end: 20061215
  2. EUTHYROX [Concomitant]
  3. ALPHA D3 [Concomitant]
  4. CALCIUM [Concomitant]

REACTIONS (2)
  - ARTHRALGIA [None]
  - OEDEMA PERIPHERAL [None]
